FAERS Safety Report 5596655-9 (Version None)
Quarter: 2008Q1

REPORT INFORMATION
  Report Type: 
  Country: None (occurrence: None)
  Receive Date: 20080118
  Receipt Date: 20080108
  Transmission Date: 20080703
  Serious: Yes (Other)
  Sender: FDA-Public Use
  Company Number: JP-PFIZER INC-2007105921

PATIENT
  Sex: Male

DRUGS (8)
  1. ZITHROMAX [Suspect]
     Indication: PYREXIA
     Route: 048
     Dates: start: 20070611, end: 20071213
  2. ZITHROMAX [Suspect]
     Indication: COUGH
  3. ASVERIN [Concomitant]
     Route: 048
  4. MUCODYNE [Concomitant]
     Route: 048
  5. PERIACTIN [Concomitant]
     Route: 048
  6. CLARITHROMYCIN [Concomitant]
     Route: 048
     Dates: start: 20071203, end: 20071207
  7. HUSTAGIN [Concomitant]
     Route: 048
     Dates: start: 20071203
  8. HUSCODE [Concomitant]
     Route: 048
     Dates: start: 20071211

REACTIONS (2)
  - HAEMATEMESIS [None]
  - VOMITING [None]
